FAERS Safety Report 7342756-4 (Version None)
Quarter: 2011Q1

REPORT INFORMATION
  Report Type: 
  Country: None (occurrence: None)
  Receive Date: 20110310
  Receipt Date: 20110304
  Transmission Date: 20110831
  Serious: Yes (Hospitalization)
  Sender: FDA-Public Use
  Company Number: US-BRISTOL-MYERS SQUIBB COMPANY-14893242

PATIENT
  Age: 65 Year
  Sex: Female
  Weight: 77 kg

DRUGS (28)
  1. ALENDRONATE SODIUM [Concomitant]
     Indication: OSTEOPOROSIS
     Dates: start: 19980101, end: 20091105
  2. ETOPOSIDE [Suspect]
     Indication: SMALL CELL LUNG CANCER STAGE UNSPECIFIED
     Dosage: DAY 1-3-29-31OCT09;80MG/M2-20NOV09-6JAN10(47D);72MG/M2-29-31JAN10(2D),08JAN10.
     Route: 042
     Dates: start: 20091029, end: 20100131
  3. CISPLATIN [Suspect]
     Indication: SMALL CELL LUNG CANCER STAGE UNSPECIFIED
     Dosage: 29OCT09-75MG/M2;20NOV09-4JAN10 60MG/M2(45D);29JAN10 54MG/M2,08JAN10.
     Route: 042
     Dates: start: 20091029, end: 20100129
  4. EZETIMIBE [Concomitant]
     Indication: HYPERLIPIDAEMIA
     Route: 048
     Dates: start: 20070101, end: 20091105
  5. DEXAMETHASONE [Concomitant]
     Indication: PROPHYLAXIS OF NAUSEA AND VOMITING
     Dosage: 12MG:20,21,22NOV,11,12,13DEC09,4,5JAN10;6,29JAN(16MG);12MG(30,31JAN2010).
     Dates: start: 20091029, end: 20100131
  6. ACYCLOVIR [Concomitant]
     Indication: HERPES ZOSTER
     Dosage: 1DF=1 APPLICATOR FULL
     Route: 061
     Dates: start: 20091111
  7. HYDROCHLOROTHIAZIDE [Concomitant]
     Indication: HYPERTENSION
     Dosage: 1998-07NOV(11 YRS) 10NOV09-ONG
     Dates: start: 19980101
  8. SODIUM CHLORIDE [Concomitant]
     Indication: FLUID REPLACEMENT
     Dosage: 3000CC(125CC/HR7-9NOV09);1750ML(20NOV09);150ML(21NOV09);100ML(22NOV09);2054ML(11DEC09);300ML12DE09.
     Dates: start: 20091029, end: 20100131
  9. POTASSIUM CHLORIDE [Concomitant]
     Indication: PROPHYLAXIS
     Dosage: 20MEQ(29,30OCT,6,20NOV,11DEC09);40MEQ(31OCT,07,08NOV09).
     Dates: start: 20091029, end: 20091211
  10. SIMETICONE [Concomitant]
     Indication: CONSTIPATION
     Dosage: 08NOV09-08NOV09(80MG)
     Dates: start: 20091019, end: 20091108
  11. PROCHLORPERAZINE EDISYLATE [Concomitant]
     Indication: PROPHYLAXIS OF NAUSEA AND VOMITING
     Dosage: DOSING FREQUENCY=Q6H PRN
     Route: 048
     Dates: start: 20091102
  12. POTASSIUM CHLORIDE [Concomitant]
     Indication: PROPHYLAXIS
     Dosage: 10NOV09-ONG;20NOV,21NOV09.
     Dates: start: 20091109, end: 20091109
  13. CEFEPIME [Concomitant]
     Indication: PROPHYLAXIS
     Dosage: 2GM(EVERY 8HRS):09JAN2010-13JAN2010(4D).
     Dates: start: 20091106, end: 20091106
  14. PEGFILGRASTIM [Concomitant]
     Indication: PROPHYLAXIS
     Dosage: 23NOV,14DEC09;07JAN2010.
     Dates: start: 20091102, end: 20100107
  15. FILGRASTIM [Concomitant]
     Indication: PROPHYLAXIS
     Dates: start: 20100109, end: 20100109
  16. ONDANSETRON [Concomitant]
     Indication: PROPHYLAXIS OF NAUSEA AND VOMITING
     Dosage: 2OCT(8MG),29OCT(12MG),30SEP(12MG)31OCT,20,21,22NOV,11,12,13DEC09,4,5,6JAN10(16MG ONCE).
     Route: 048
     Dates: start: 20091002
  17. APREPITANT [Concomitant]
     Indication: PROPHYLAXIS OF NAUSEA AND VOMITING
     Dosage: 125MG(29OCT,20NOV,11DEC09,4,29JAN10);80MG(30-31OCT,21,22NOV,12DEC09,5,6,30,31JAN2010).
     Dates: start: 20091029, end: 20100131
  18. MAGNESIUM SULFATE [Concomitant]
     Indication: PROPHYLAXIS
     Dosage: 2GM(29OCT,07,20NOV,11DEC09);4GM(09NOV09)
     Dates: start: 20091029, end: 20091211
  19. CETIRIZINE HCL [Concomitant]
     Indication: SEASONAL ALLERGY
     Dates: start: 20090929
  20. SIMETICONE [Concomitant]
     Indication: ABDOMINAL DISTENSION
     Dosage: 08NOV09-08NOV09(80MG)
     Dates: start: 20091019, end: 20091108
  21. METOPROLOL SUCCINATE [Concomitant]
     Indication: HYPERTENSION
     Dosage: 29SEP2009-07NOV2009(39D);09NOV2009
     Dates: start: 20090929
  22. VANCOMYCIN [Concomitant]
     Indication: FEBRILE NEUTROPENIA
     Dates: start: 20091106, end: 20091108
  23. METOPROLOL [Concomitant]
     Indication: HYPERTENSION
     Dates: start: 20070101, end: 20091107
  24. OMEPRAZOLE [Concomitant]
     Indication: GASTROOESOPHAGEAL REFLUX DISEASE
     Dates: start: 20091016
  25. MANNITOL [Concomitant]
     Dosage: 11DEC09;04,29JAN2010;25PERCENT:12.5MG(20NOV09;11DEC09;04JAN2010).
     Dates: start: 20091029, end: 20100129
  26. VALACYCLOVIR [Concomitant]
     Indication: HERPES ZOSTER
     Dosage: 2700MG(900MG,3 IN 1D):12NOV-19NOV09(7D).
     Dates: start: 20091112
  27. CEFEPIME [Concomitant]
     Indication: FEBRILE NEUTROPENIA
     Dosage: 2GM(EVERY 8HRS):09JAN2010-13JAN2010(4D).
     Dates: start: 20091106, end: 20091106
  28. LORAZEPAM [Concomitant]
     Indication: PROPHYLAXIS OF NAUSEA AND VOMITING
     Dosage: 0.5-1 MG(AS REQUIRED);19NOV09-19NOV09(2MG)(1MG,2 IN 1 D);23NOV09(1MG,ONCE).
     Route: 048
     Dates: start: 20091102

REACTIONS (4)
  - ANAEMIA [None]
  - ABDOMINAL PAIN [None]
  - HYPOKALAEMIA [None]
  - FEBRILE NEUTROPENIA [None]
